FAERS Safety Report 18832290 (Version 1)
Quarter: 2021Q1

REPORT INFORMATION
  Report Type: Spontaneous
  Country: US (occurrence: US)
  Receive Date: 20210201
  Receipt Date: 20210201
  Transmission Date: 20210419
  Serious: Yes (Other)
  Sender: FDA-Public Use
  Company Number: US-ASTRAZENECA-2021A021694

PATIENT

DRUGS (4)
  1. IBRANCE [Suspect]
     Active Substance: PALBOCICLIB
     Indication: BREAST CANCER
     Dosage: 75 MG DAILY FOR 21 DAYS AND OFF 7 DAYS
     Route: 048
     Dates: start: 20200106
  2. ANASTROZOLE. [Suspect]
     Active Substance: ANASTROZOLE
     Dosage: UNKNOWN DOSE AND FREQUENCY
     Route: 048
  3. HYDROCHLOROTHIAZIDE. [Concomitant]
     Active Substance: HYDROCHLOROTHIAZIDE
  4. FASLODEX [Suspect]
     Active Substance: FULVESTRANT
     Dosage: UNKNOWN DOSE AND FREQUENCY
     Route: 030

REACTIONS (12)
  - Rash [Unknown]
  - Blood pressure increased [Unknown]
  - Blood sodium decreased [Unknown]
  - Rash pruritic [Not Recovered/Not Resolved]
  - Myalgia [Unknown]
  - Off label use [Unknown]
  - Breast pain [Unknown]
  - Sinus disorder [Unknown]
  - Injection site pruritus [Recovering/Resolving]
  - Blood potassium decreased [Unknown]
  - Injection site pain [Recovering/Resolving]
  - Acquired gene mutation [Unknown]
